FAERS Safety Report 4784720-5 (Version None)
Quarter: 2005Q3

REPORT INFORMATION
  Report Type: 
  Country: None (occurrence: None)
  Receive Date: 20050929
  Receipt Date: 20050929
  Transmission Date: 20060218
  Serious: Yes (Hospitalization)
  Sender: FDA-Public Use
  Company Number: None

PATIENT
  Age: 71 Year
  Sex: Male
  Weight: 105.9 kg

DRUGS (17)
  1. DIGOXIN [Suspect]
     Indication: CARDIAC FAILURE CONGESTIVE
     Dosage: 0.25MG,0.25MG Q, ORAL
     Route: 048
  2. HYDRALAZINE HCL [Concomitant]
  3. FUROSEMIDE [Concomitant]
  4. ALLOPURINOL [Concomitant]
  5. ISOSORBIDE DINITRATE [Concomitant]
  6. ATENOLOL [Concomitant]
  7. GABAPENTIN [Concomitant]
  8. SYNTHROID [Concomitant]
  9. COUMADIN [Concomitant]
  10. ACETAMINOPHEN [Concomitant]
  11. FLUNISOLIDE [Concomitant]
  12. LORATADINE [Concomitant]
  13. SALMETEROL 50MCG/BLSTR PO INHL DISKUS 60 [Concomitant]
  14. LISINOPRIL [Concomitant]
  15. METOLAZONE [Concomitant]
  16. ALBUTEROL SULFATE AND IPRATROPIUM BROMIDE [Concomitant]
  17. AMOXICILLIN 875/CLAV K [Concomitant]

REACTIONS (3)
  - DRUG LEVEL INCREASED [None]
  - NAUSEA [None]
  - VOMITING [None]
